FAERS Safety Report 8423053-2 (Version None)
Quarter: 2012Q2

REPORT INFORMATION
  Report Type: 
  Country: None (occurrence: None)
  Receive Date: 20120608
  Receipt Date: 20120531
  Transmission Date: 20120825
  Serious: Yes (Other)
  Sender: FDA-Public Use
  Company Number: DE-JNJFOC-20120312901

PATIENT
  Age: 65 Year
  Sex: Female

DRUGS (3)
  1. SIMPONI [Suspect]
     Indication: RHEUMATOID ARTHRITIS
     Route: 058
     Dates: start: 20090117
  2. CORTISONE ACETATE [Concomitant]
     Dates: end: 20101101
  3. MORPHINE [Concomitant]
     Dates: end: 20100701

REACTIONS (8)
  - PAIN IN EXTREMITY [None]
  - PAIN [None]
  - SPINAL DISORDER [None]
  - MYOCARDIAL INFARCTION [None]
  - THERAPEUTIC RESPONSE DECREASED [None]
  - FIBROMYALGIA [None]
  - INCONTINENCE [None]
  - SENSATION OF PRESSURE [None]
